FAERS Safety Report 6704475-4 (Version None)
Quarter: 2010Q2

REPORT INFORMATION
  Report Type: 
  Country: None (occurrence: None)
  Receive Date: 20100430
  Receipt Date: 20100422
  Transmission Date: 20101027
  Serious: Yes (Disabling)
  Sender: FDA-Public Use
  Company Number: GXKR2010NO04444

PATIENT
  Sex: Female

DRUGS (3)
  1. OXALIPLATIN [Suspect]
     Indication: COLON CANCER
     Dosage: 85 MG/M2, QD (EVERY SECOND WEEK; 9 TO 10 TREATMENTS GIVEN)
     Route: 041
     Dates: start: 20090814, end: 20091222
  2. CALCIUM FOLINATE (NGX) [Suspect]
     Indication: COLON CANCER
     Dosage: 100 MG, QD (ON 2 CONSECUTIVE DAYS EVERY SECOND WEEK)
     Route: 041
     Dates: start: 20090814, end: 20091222
  3. FLUOROURACIL [Suspect]
     Indication: COLON CANCER
     Dosage: 500 MG, QD (GIVEN ON TWO CONSECUTIVE DAYS, EVERY SECOND WEEK, 9 TO 10 TREATMENTS GIVEN)
     Route: 041
     Dates: start: 20090814, end: 20091222

REACTIONS (4)
  - CREPITATIONS [None]
  - DYSAESTHESIA [None]
  - PARAESTHESIA [None]
  - PERIPHERAL COLDNESS [None]
